FAERS Safety Report 8467300-X (Version None)
Quarter: 2012Q2

REPORT INFORMATION
  Report Type: 
  Country: None (occurrence: None)
  Receive Date: 20120323
  Receipt Date: 20110816
  Transmission Date: 20120825
  Serious: Yes (Other)
  Sender: FDA-Public Use
  Company Number: 163-21880-11081998

PATIENT
  Age: 79 Year
  Sex: Female

DRUGS (3)
  1. REVLIMID [Suspect]
     Indication: MULTIPLE MYELOMA
     Dosage: 25 MG, 1 IN 1 D, PO ; 10 MG, 1 IN 1 D, PO  ;25 MG, 1 IN 1 D, PO
     Route: 048
     Dates: start: 20070901
  2. REVLIMID [Suspect]
     Indication: MULTIPLE MYELOMA
     Dosage: 25 MG, 1 IN 1 D, PO ; 10 MG, 1 IN 1 D, PO  ;25 MG, 1 IN 1 D, PO
     Route: 048
     Dates: start: 20110101, end: 20110714
  3. REVLIMID [Suspect]
     Indication: MULTIPLE MYELOMA
     Dosage: 25 MG, 1 IN 1 D, PO ; 10 MG, 1 IN 1 D, PO  ;25 MG, 1 IN 1 D, PO
     Route: 048
     Dates: start: 20100601

REACTIONS (2)
  - CEREBRAL INFARCTION [None]
  - VISUAL FIELD DEFECT [None]
